FAERS Safety Report 11130335 (Version 1)
Quarter: 2015Q2

REPORT INFORMATION
  Report Type: Report from Study
  Country: KR (occurrence: KR)
  Receive Date: 20150522
  Receipt Date: 20150522
  Transmission Date: 20150821
  Serious: Yes (Hospitalization)
  Sender: FDA-Public Use
  Company Number: KR-AMGEN-KORCT2015049263

PATIENT
  Age: 41 Year
  Sex: Female

DRUGS (24)
  1. SANCUSO [Concomitant]
     Active Substance: GRANISETRON
     Dosage: 34.3 MG, UNK
     Route: 061
     Dates: start: 20150408
  2. TRIDOL [Concomitant]
     Dosage: 50 MG, UNK
     Route: 048
     Dates: start: 20150408, end: 20150415
  3. DENOGAN [Concomitant]
     Dosage: 1 G, UNK
     Route: 042
     Dates: start: 20150415, end: 20150416
  4. PRIVITUSS [Concomitant]
     Dosage: 8 ML, UNK
     Route: 048
     Dates: start: 20150504
  5. DOCETAXEL. [Concomitant]
     Active Substance: DOCETAXEL
     Dosage: 129 MG, UNK
     Route: 042
     Dates: start: 20150409, end: 20150409
  6. CYCLOPHOSPHAMIDE. [Concomitant]
     Active Substance: CYCLOPHOSPHAMIDE
     Dosage: 850 MG, UNK
     Route: 042
     Dates: start: 20150430, end: 20150430
  7. GABAPENTIN. [Concomitant]
     Active Substance: GABAPENTIN
     Dosage: 100 MG, UNK
     Route: 048
     Dates: start: 20150409
  8. FREEPAN                            /00008702/ [Concomitant]
     Dosage: 20 MG, UNK
     Route: 042
     Dates: start: 20150417, end: 20150419
  9. PEGFILGRASTIM [Suspect]
     Active Substance: PEGFILGRASTIM
     Indication: FEBRILE NEUTROPENIA
     Dosage: 6 MG, 1X/3WEEKS
     Route: 058
     Dates: start: 20150410
  10. NESP [Concomitant]
     Active Substance: DARBEPOETIN ALFA
     Dosage: 120 MG, UNK
     Route: 058
     Dates: start: 20150429
  11. MECOOL [Concomitant]
     Dosage: 10 MG, UNK
     Route: 042
     Dates: start: 20150503, end: 20150505
  12. ZIPAN                              /00033002/ [Concomitant]
     Dosage: 50 MG, UNK
     Route: 042
     Dates: start: 20150415, end: 20150415
  13. ZIPAN                              /00033002/ [Concomitant]
     Dosage: 50 MG, UNK
     Route: 042
     Dates: start: 20150503, end: 20150507
  14. MAGMIL [Concomitant]
     Active Substance: MAGNESIUM HYDROXIDE
     Dosage: 500 MG, UNK
     Route: 048
     Dates: start: 20150420, end: 20150504
  15. DOCETAXEL. [Concomitant]
     Active Substance: DOCETAXEL
     Dosage: 127.5 MG, UNK
     Route: 042
     Dates: start: 20150430, end: 20150430
  16. DOXORUBICIN [Concomitant]
     Active Substance: DOXORUBICIN
     Dosage: 86 MG, UNK
     Route: 042
     Dates: start: 20150409, end: 20150409
  17. CYCLOPHOSPHAMIDE. [Concomitant]
     Active Substance: CYCLOPHOSPHAMIDE
     Dosage: 860 MG, UNK
     Route: 042
     Dates: start: 20150409, end: 20150409
  18. ALGIRON [Concomitant]
     Dosage: 5 MG, UNK
     Route: 042
     Dates: start: 20150415, end: 20150417
  19. ANTIBIO [Concomitant]
     Dosage: 300 MG, UNK
     Route: 048
     Dates: start: 20150416, end: 20150504
  20. PEGFILGRASTIM [Suspect]
     Active Substance: PEGFILGRASTIM
     Dosage: 6 MG, 1X/3WEEKS
     Route: 058
     Dates: start: 20150501
  21. DOXORUBICIN [Concomitant]
     Active Substance: DOXORUBICIN
     Dosage: 85 MG, UNK
     Route: 042
     Dates: start: 20150430, end: 20150430
  22. DENOGAN [Concomitant]
     Dosage: 1 G, UNK
     Route: 042
     Dates: start: 20150503, end: 20150505
  23. TAZOPERAN [Concomitant]
     Dosage: 4.5 G, UNK
     Route: 042
     Dates: start: 20150415, end: 20150419
  24. MEGACE [Concomitant]
     Active Substance: MEGESTROL ACETATE
     Dosage: 10 ML, UNK
     Route: 048
     Dates: start: 20150430, end: 20150506

REACTIONS (4)
  - Abdominal pain [Recovered/Resolved]
  - Neutropenia [Recovered/Resolved]
  - Neutropenia [Recovered/Resolved]
  - Nausea [Recovered/Resolved]

NARRATIVE: CASE EVENT DATE: 20150415
